FAERS Safety Report 4823883-X (Version None)
Quarter: 2005Q4

REPORT INFORMATION
  Report Type: 
  Country: None (occurrence: None)
  Receive Date: 20051107
  Receipt Date: 20051026
  Transmission Date: 20060501
  Serious: Yes (Hospitalization)
  Sender: FDA-Public Use
  Company Number: 235164K05USA

PATIENT
  Age: 26 Year
  Sex: Female

DRUGS (7)
  1. REBIF [Suspect]
     Indication: MULTIPLE SCLEROSIS
     Dosage: 44 MCG, 3 IN 1 WEEKS, SUBCUTANEOUS
     Route: 058
     Dates: start: 20050913
  2. NORTRIPTYLINE (NORTRIPTYLINE /00006501/) [Concomitant]
  3. CLONAZEPAM [Concomitant]
  4. AMITRIPTYLINE (AMITRIPTYLINE /00002201/) [Concomitant]
  5. RITALIN [Concomitant]
  6. RANITIDINE (RANITIDINE/00550801/) [Concomitant]
  7. COMPAZINE [Concomitant]

REACTIONS (10)
  - ABDOMINAL PAIN UPPER [None]
  - ANAEMIA [None]
  - BLOOD IRON INCREASED [None]
  - HYPOKALAEMIA [None]
  - LEUKOPENIA [None]
  - NAUSEA [None]
  - PYREXIA [None]
  - TACHYCARDIA [None]
  - VIRAL INFECTION [None]
  - VOMITING [None]
